FAERS Safety Report 9229161 (Version 1)
Quarter: 2013Q2

REPORT INFORMATION
  Report Type: Spontaneous
  Country: GB (occurrence: GB)
  Receive Date: 20130412
  Receipt Date: 20130412
  Transmission Date: 20140414
  Serious: Yes (Death, Hospitalization)
  Sender: FDA-Public Use
  Company Number: GB-B.I. PHARMACEUTICALS,INC./RIDGEFIELD-2013-UK-00817UK

PATIENT
  Age: 26 Year
  Sex: Female
  Weight: 58 kg

DRUGS (1)
  1. DULCOLAX [Suspect]

REACTIONS (22)
  - Multi-organ failure [Fatal]
  - Intentional overdose [Unknown]
  - Oesophagitis [Unknown]
  - Gastrointestinal necrosis [Unknown]
  - Gastrointestinal necrosis [Unknown]
  - Dehydration [Unknown]
  - Hyponatraemia [Unknown]
  - Nausea [Unknown]
  - Vomiting [Unknown]
  - Diarrhoea [Unknown]
  - Diarrhoea haemorrhagic [Unknown]
  - Metabolic acidosis [Unknown]
  - Oliguria [Unknown]
  - Prerenal failure [Unknown]
  - Hypotension [Unknown]
  - Tachypnoea [Unknown]
  - Heart rate increased [Unknown]
  - Abdominal pain [Unknown]
  - Abdominal discomfort [Unknown]
  - Pleural effusion [Unknown]
  - Nephritis [Unknown]
  - Renal infarct [Unknown]
